FAERS Safety Report 9225033 (Version 3)
Quarter: 2014Q4

REPORT INFORMATION
  Report Type: Spontaneous
  Country: CA (occurrence: CA)
  Receive Date: 20130411
  Receipt Date: 20141009
  Transmission Date: 20150529
  Serious: Yes (Hospitalization, Other)
  Sender: FDA-Public Use
  Company Number: CA-JNJFOC-20130405016

PATIENT
  Sex: Male

DRUGS (1)
  1. NICORETTE QUICKMIST NICO-SPRAY [Suspect]
     Active Substance: NICOTINE
     Indication: SMOKING CESSATION THERAPY
     Route: 048
     Dates: start: 2013, end: 2013

REACTIONS (5)
  - Cerebrovascular accident [Recovered/Resolved]
  - Hiccups [Recovered/Resolved]
  - Syncope [Recovered/Resolved]
  - Pulmonary pain [Recovered/Resolved]
  - Musculoskeletal chest pain [Recovered/Resolved]

NARRATIVE: CASE EVENT DATE: 2013
